FAERS Safety Report 22646621 (Version 1)
Quarter: 2023Q2

REPORT INFORMATION
  Report Type: Spontaneous
  Country: US (occurrence: None)
  Receive Date: 20230626
  Receipt Date: 20230626
  Transmission Date: 20230721
  Serious: No
  Sender: FDA-Public Use
  Company Number: None

PATIENT

DRUGS (2)
  1. NIFEDIPINE [Suspect]
     Active Substance: NIFEDIPINE
  2. LIDOCAINE [Suspect]
     Active Substance: LIDOCAINE

REACTIONS (4)
  - Product preparation error [None]
  - Product label issue [None]
  - Pain [None]
  - Product administration error [None]
